FAERS Safety Report 24581625 (Version 1)
Quarter: 2024Q4

REPORT INFORMATION
  Report Type: Spontaneous
  Country: SI (occurrence: SI)
  Receive Date: 20241105
  Receipt Date: 20241105
  Transmission Date: 20250114
  Serious: Yes (Other)
  Sender: BOEHRINGER INGELHEIM
  Company Number: None

PATIENT
  Age: 79 Year
  Sex: Male

DRUGS (13)
  1. JARDIANCE [Suspect]
     Active Substance: EMPAGLIFLOZIN
     Indication: Cardiac failure
     Dosage: MORNING
     Route: 048
     Dates: start: 20241007
  2. ALDACTONE [Suspect]
     Active Substance: SPIRONOLACTONE
     Indication: Hypertension
     Route: 048
     Dates: start: 20241007, end: 20241018
  3. FUROSEMIDE [Suspect]
     Active Substance: FUROSEMIDE
     Indication: Hypertension
     Route: 048
     Dates: start: 20241007
  4. Amoksiklav 500 MG/125 MG [Concomitant]
     Indication: Inflammatory marker increased
     Dosage: STRENGHT: 500 MG/125 MG
     Dates: start: 20241014
  5. Nolpaza 40 MG [Concomitant]
     Indication: Product used for unknown indication
     Dosage: AN EMPTY STOMACH
  6. ALOPURINOL BELUPO 100 MG [Concomitant]
     Indication: Product used for unknown indication
  7. Plivit D3 4000 IU [Concomitant]
     Indication: Product used for unknown indication
     Dosage: STRENGHT: 4000 I.E./ML
  8. EUTHYROX 25 MICROGRAM [Concomitant]
     Indication: Product used for unknown indication
  9. EUTHYROX [Concomitant]
     Active Substance: LEVOTHYROXINE SODIUM
     Indication: Product used for unknown indication
  10. Ezoleta 10 MG [Concomitant]
     Indication: Product used for unknown indication
  11. CONCOR COR 2,5 MG [Concomitant]
     Indication: Product used for unknown indication
     Dosage: IN THE MORNING
  12. NOVOMIX 30 FLEXPEN 100 IU/ML [Concomitant]
     Indication: Product used for unknown indication
     Dosage: STRENGHT:  100 E./ML ?DOSE: 10 UNITS IN THE MORNINGS
  13. WARFARIN SODIUM [Concomitant]
     Active Substance: WARFARIN SODIUM
     Indication: Product used for unknown indication
     Dosage: ACCORDING TO THE SCHEME

REACTIONS (3)
  - Hyponatraemia [Recovered/Resolved]
  - Hypokalaemia [Recovered/Resolved]
  - Cardiac failure acute [Recovered/Resolved]
